FAERS Safety Report 7733843-7 (Version None)
Quarter: 2011Q3

REPORT INFORMATION
  Report Type: 
  Country: None (occurrence: None)
  Receive Date: 20110906
  Receipt Date: 20110906
  Transmission Date: 20111222
  Serious: Yes (Life-Threatening)
  Sender: FDA-Public Use
  Company Number: None

PATIENT
  Age: 42 Year
  Sex: Female
  Weight: 90.7194 kg

DRUGS (1)
  1. CARBAMAZEPINE [Suspect]
     Indication: CONVULSION
     Dosage: 1 TABLET 3 TIMES DAILY
     Dates: start: 20110506

REACTIONS (8)
  - PRODUCT TASTE ABNORMAL [None]
  - DIZZINESS [None]
  - HYPOAESTHESIA ORAL [None]
  - DIPLOPIA [None]
  - HYPOAESTHESIA [None]
  - DYSPNOEA [None]
  - CLUMSINESS [None]
  - SLEEP APNOEA SYNDROME [None]
